FAERS Safety Report 7945303-9 (Version None)
Quarter: 2011Q4

REPORT INFORMATION
  Report Type: 
  Country: None (occurrence: None)
  Receive Date: 20111129
  Receipt Date: 20110114
  Transmission Date: 20120403
  Serious: No
  Sender: FDA-Public Use
  Company Number: US-GLAXOSMITHKLINE-A0906199A

PATIENT
  Age: 35 Year
  Sex: Female

DRUGS (3)
  1. BUPROPION HYDROCHLORIDE [Suspect]
     Indication: IRRITABLE BOWEL SYNDROME
     Dosage: 150MG TWICE PER DAY
     Route: 048
     Dates: start: 20100401
  2. WELLBUTRIN [Suspect]
     Indication: IRRITABLE BOWEL SYNDROME
     Route: 048
     Dates: start: 19950101, end: 19950101
  3. OTHER MEDICATIONS [Concomitant]

REACTIONS (1)
  - VERTIGO [None]
